FAERS Safety Report 18589670 (Version 1)
Quarter: 2020Q4

REPORT INFORMATION
  Report Type: Spontaneous
  Country: JP (occurrence: JP)
  Receive Date: 20201208
  Receipt Date: 20201208
  Transmission Date: 20210114
  Serious: Yes (Hospitalization)
  Sender: FDA-Public Use
  Company Number: NVSJ2020JP013187

PATIENT
  Age: 87 Year
  Sex: Male

DRUGS (1)
  1. ENERZAIR (MOMETASONE FUROATE\INDACATEROL ACETATE\GLYCOPYRRONIUM BROMIDE) [Suspect]
     Active Substance: GLYCOPYRROLATE\INDACATEROL\MOMETASONE FUROATE
     Indication: ASTHMA
     Dosage: 1 DF?INDACATEROL173UG,GLYCOPYRRONIUM63UG,MOMETASONE FUROATE160UG
     Route: 055

REACTIONS (1)
  - Asthma [Unknown]
